FAERS Safety Report 13159646 (Version 1)
Quarter: 2017Q1

REPORT INFORMATION
  Report Type: Spontaneous
  Country: AU (occurrence: AU)
  Receive Date: 20170127
  Receipt Date: 20170127
  Transmission Date: 20170428
  Serious: Yes (Other)
  Sender: FDA-Public Use
  Company Number: AU-MYLANLABS-2017M1004637

PATIENT

DRUGS (1)
  1. AMITRIPTYLINE ALPHAPHARM [Suspect]
     Active Substance: AMITRIPTYLINE
     Indication: PRODUCT USED FOR UNKNOWN INDICATION
     Dosage: UNK

REACTIONS (4)
  - Respiratory rate increased [Unknown]
  - Dyspnoea [Unknown]
  - Angina pectoris [Unknown]
  - Angina pectoris [None]
